FAERS Safety Report 9543497 (Version 2)
Quarter: 2013Q4

REPORT INFORMATION
  Report Type: Spontaneous
  Country: CH (occurrence: CH)
  Receive Date: 20130923
  Receipt Date: 20131030
  Transmission Date: 20140711
  Serious: Yes (Hospitalization, Other)
  Sender: FDA-Public Use
  Company Number: CH-PFIZER INC-2013272062

PATIENT
  Age: 32 Year
  Sex: Female
  Weight: 90 kg

DRUGS (8)
  1. LYRICA [Suspect]
     Indication: GENERALISED ANXIETY DISORDER
     Dosage: UNK
     Dates: start: 201101
  2. LYRICA [Suspect]
     Dosage: 75 MG, 2X/DAY
  3. LYRICA [Suspect]
     Dosage: 300 MG, 2X/DAY
  4. LYRICA [Suspect]
     Dosage: 1800 MG, DAILY
  5. LYRICA [Suspect]
     Dosage: 100 MG, 2X/DAY
  6. LORAZEPAM [Suspect]
     Dosage: APPROXIMATELY 6 TO 10 MG PER DAY
  7. ESCITALOPRAM [Concomitant]
     Dosage: 20 MG, DAILY
  8. ALPRAZOLAM [Concomitant]
     Dosage: 6 MG, DAILY

REACTIONS (5)
  - Intentional overdose [Recovered/Resolved]
  - Drug abuse [Recovered/Resolved]
  - Sedation [Unknown]
  - Bradyphrenia [Unknown]
  - Drug ineffective [Unknown]
